FAERS Safety Report 4663017-8 (Version None)
Quarter: 2005Q2

REPORT INFORMATION
  Report Type: 
  Country: None (occurrence: None)
  Receive Date: 20050511
  Receipt Date: 20041123
  Transmission Date: 20051028
  Serious: Yes (Death)
  Sender: FDA-Public Use
  Company Number: ZONI002058

PATIENT
  Age: 14 Year
  Sex: Female

DRUGS (3)
  1. ZONEGRAN [Suspect]
     Indication: CONVULSION
     Dosage: 200 MG, 2 IN 1 D, ORAL
     Route: 048
     Dates: start: 20040731
  2. DEPAKOTE [Concomitant]
  3. NAPROXEN [Concomitant]

REACTIONS (1)
  - SUDDEN DEATH [None]
